FAERS Safety Report 24027045 (Version 1)
Quarter: 2024Q2

REPORT INFORMATION
  Report Type: Report from Study
  Country: TR (occurrence: TR)
  Receive Date: 20240628
  Receipt Date: 20240628
  Transmission Date: 20240716
  Serious: No
  Sender: FDA-Public Use
  Company Number: TR-ROCHE-3577364

PATIENT
  Age: 36 Year
  Sex: Male
  Weight: 68.0 kg

DRUGS (20)
  1. ALECTINIB [Suspect]
     Active Substance: ALECTINIB
     Indication: Non-small cell lung cancer metastatic
     Route: 048
     Dates: start: 20210324
  2. ALECTINIB [Suspect]
     Active Substance: ALECTINIB
     Route: 048
     Dates: start: 20210611
  3. GERALGINE-K [Concomitant]
     Indication: Bone pain
     Dates: start: 20210310
  4. DEXAMETHASONE [Concomitant]
     Active Substance: DEXAMETHASONE
     Indication: Oedema
     Route: 048
     Dates: start: 20210317
  5. DELTACORTRIL [Concomitant]
     Active Substance: PREDNISOLONE
     Route: 048
     Dates: start: 20210907, end: 20231029
  6. SULFASALAZINE [Concomitant]
     Active Substance: SULFASALAZINE
     Route: 048
     Dates: start: 20210907, end: 20231029
  7. D-COLEFOR [Concomitant]
     Indication: Vitamin D deficiency
     Route: 048
     Dates: start: 20210907
  8. NUTRIVIGOR [Concomitant]
     Dates: start: 20211107
  9. KEPPRA [Concomitant]
     Active Substance: LEVETIRACETAM
     Route: 048
     Dates: start: 20220825
  10. BENEDAY [Concomitant]
     Dates: start: 20220614, end: 20221003
  11. LANSOPRAZOLE [Concomitant]
     Active Substance: LANSOPRAZOLE
     Dates: start: 20210317
  12. BEVACIZUMAB [Concomitant]
     Active Substance: BEVACIZUMAB
     Dates: start: 20220517, end: 20220614
  13. BEVACIZUMAB [Concomitant]
     Active Substance: BEVACIZUMAB
     Dates: start: 20221103, end: 20221215
  14. BEVACIZUMAB [Concomitant]
     Active Substance: BEVACIZUMAB
     Dates: start: 20230522, end: 20230605
  15. CIPRALEX [Concomitant]
     Active Substance: ESCITALOPRAM OXALATE
     Route: 048
     Dates: start: 20221003
  16. BACTROBAN [Concomitant]
     Active Substance: MUPIROCIN CALCIUM
     Dates: start: 20220517
  17. TANFLEX [Concomitant]
     Route: 048
     Dates: start: 20220614
  18. EPINEPHRINE\LIDOCAINE HYDROCHLORIDE [Concomitant]
     Active Substance: EPINEPHRINE\LIDOCAINE HYDROCHLORIDE
     Dates: start: 20220614
  19. PAROL [Concomitant]
     Active Substance: ACETAMINOPHEN
     Dates: start: 20220913, end: 20220922
  20. LORLATINIB [Concomitant]
     Active Substance: LORLATINIB
     Dates: start: 20230109, end: 20231028

REACTIONS (1)
  - Decreased appetite [Not Recovered/Not Resolved]

NARRATIVE: CASE EVENT DATE: 20211001
